FAERS Safety Report 8312073-4 (Version None)
Quarter: 2012Q2

REPORT INFORMATION
  Report Type: 
  Country: None (occurrence: None)
  Receive Date: 20120425
  Receipt Date: 20110606
  Transmission Date: 20120825
  Serious: No
  Sender: FDA-Public Use
  Company Number: US-PFIZER INC-2011123413

PATIENT

DRUGS (2)
  1. ZOLOFT [Suspect]
     Dosage: 50 MG, UNK
  2. SERTRALINE HYDROCHLORIDE [Suspect]
     Dosage: 50 MG, UNK

REACTIONS (10)
  - LIP DRY [None]
  - DRUG INEFFECTIVE [None]
  - HYPOAESTHESIA [None]
  - DRY MOUTH [None]
  - HEADACHE [None]
  - DIZZINESS [None]
  - IRRITABILITY [None]
  - MYALGIA [None]
  - NAUSEA [None]
  - ANGER [None]
